FAERS Safety Report 19754562 (Version 1)
Quarter: 2021Q3

REPORT INFORMATION
  Report Type: Spontaneous
  Country: US (occurrence: US)
  Receive Date: 20210827
  Receipt Date: 20210827
  Transmission Date: 20211014
  Serious: Yes (Death, Other)
  Sender: FDA-Public Use
  Company Number: NVSC2021US192784

PATIENT
  Sex: Male

DRUGS (1)
  1. TASIGNA [Suspect]
     Active Substance: NILOTINIB
     Indication: CHRONIC MYELOID LEUKAEMIA
     Dosage: UNK
     Route: 048
     Dates: start: 201110, end: 2018

REACTIONS (9)
  - Arterial occlusive disease [Unknown]
  - Transient ischaemic attack [Unknown]
  - Anxiety [Unknown]
  - Death [Fatal]
  - Arteriosclerosis [Unknown]
  - Injury [Unknown]
  - Carotid arteriosclerosis [Unknown]
  - Emotional distress [Unknown]
  - Pain [Unknown]

NARRATIVE: CASE EVENT DATE: 20190318
